FAERS Safety Report 13612041 (Version 1)
Quarter: 2017Q2

REPORT INFORMATION
  Report Type: Spontaneous
  Country: IT (occurrence: IT)
  Receive Date: 20170605
  Receipt Date: 20170605
  Transmission Date: 20170830
  Serious: Yes (Other)
  Sender: FDA-Public Use
  Company Number: IT-MYLANLABS-2017M1032367

PATIENT

DRUGS (2)
  1. TAVOR (LORAZEPAM) [Concomitant]
     Active Substance: LORAZEPAM
     Indication: ANXIETY DISORDER
     Dosage: UNK
  2. CLOPIDOGREL [Suspect]
     Active Substance: CLOPIDOGREL BISULFATE
     Indication: ANGINA PECTORIS
     Dosage: UNK
     Route: 048
     Dates: start: 20170512, end: 20170528

REACTIONS (12)
  - Respiratory distress [Recovered/Resolved]
  - Hypoaesthesia [Recovered/Resolved]
  - Pruritus [Recovered/Resolved]
  - Dizziness [Recovered/Resolved]
  - Blood pressure decreased [Recovered/Resolved]
  - Arthralgia [Recovered/Resolved]
  - Rash [Recovered/Resolved]
  - Abdominal pain [Recovered/Resolved]
  - Asthenia [Recovered/Resolved]
  - Discomfort [Recovered/Resolved]
  - Visual impairment [Recovered/Resolved]
  - Nausea [Recovered/Resolved]

NARRATIVE: CASE EVENT DATE: 20170528
